FAERS Safety Report 6941670-3 (Version None)
Quarter: 2010Q3

REPORT INFORMATION
  Report Type: 
  Country: None (occurrence: None)
  Receive Date: 20100826
  Receipt Date: 20100823
  Transmission Date: 20110219
  Serious: Yes (Hospitalization, Other)
  Sender: FDA-Public Use
  Company Number: US-ASTRAZENECA-2006UW23509

PATIENT
  Age: 42 Year
  Sex: Male
  Weight: 120.2 kg

DRUGS (73)
  1. SEROQUEL [Suspect]
     Indication: PSYCHOTIC DISORDER
     Route: 048
     Dates: start: 20000101, end: 20050101
  2. SEROQUEL [Suspect]
     Indication: SCHIZOAFFECTIVE DISORDER
     Route: 048
     Dates: start: 20000101, end: 20050101
  3. SEROQUEL [Suspect]
     Dosage: 100 MG TO 800 MG
     Route: 048
     Dates: start: 20000619
  4. SEROQUEL [Suspect]
     Dosage: 100 MG TO 800 MG
     Route: 048
     Dates: start: 20000619
  5. SEROQUEL [Suspect]
     Dosage: 100 MG 1 TAB AM, 2 TAB HS
     Route: 048
     Dates: start: 20000621, end: 20000101
  6. SEROQUEL [Suspect]
     Dosage: 100 MG 1 TAB AM, 2 TAB HS
     Route: 048
     Dates: start: 20000621, end: 20000101
  7. SEROQUEL [Suspect]
     Dosage: 100 MG 1 TAB AM, 3 TAB HS
     Route: 048
     Dates: start: 20000816, end: 20000101
  8. SEROQUEL [Suspect]
     Dosage: 100 MG 1 TAB AM, 3 TAB HS
     Route: 048
     Dates: start: 20000816, end: 20000101
  9. SEROQUEL [Suspect]
     Route: 048
     Dates: start: 20001009
  10. SEROQUEL [Suspect]
     Route: 048
     Dates: start: 20001009
  11. SEROQUEL [Suspect]
     Route: 048
     Dates: start: 20010101
  12. SEROQUEL [Suspect]
     Route: 048
     Dates: start: 20010101
  13. SEROQUEL [Suspect]
     Route: 048
     Dates: start: 20010725
  14. SEROQUEL [Suspect]
     Route: 048
     Dates: start: 20010725
  15. SEROQUEL [Suspect]
     Route: 048
     Dates: start: 20020813
  16. SEROQUEL [Suspect]
     Route: 048
     Dates: start: 20020813
  17. SEROQUEL [Suspect]
     Route: 048
     Dates: start: 20021017
  18. SEROQUEL [Suspect]
     Route: 048
     Dates: start: 20021017
  19. SEROQUEL [Suspect]
     Route: 048
     Dates: start: 20021104
  20. SEROQUEL [Suspect]
     Route: 048
     Dates: start: 20021104
  21. SEROQUEL [Suspect]
     Dosage: 300 MG BID, 1 1/2 TAB HS
     Route: 048
     Dates: start: 20030414
  22. SEROQUEL [Suspect]
     Dosage: 300 MG BID, 1 1/2 TAB HS
     Route: 048
     Dates: start: 20030414
  23. SEROQUEL [Suspect]
     Route: 048
     Dates: start: 20030530
  24. SEROQUEL [Suspect]
     Route: 048
     Dates: start: 20030530
  25. SEROQUEL [Suspect]
     Route: 048
     Dates: start: 20050101
  26. SEROQUEL [Suspect]
     Route: 048
     Dates: start: 20050101
  27. SEROQUEL [Suspect]
     Route: 048
     Dates: end: 20070501
  28. SEROQUEL [Suspect]
     Route: 048
     Dates: end: 20070501
  29. SEROQUEL [Suspect]
     Route: 048
     Dates: start: 20060101, end: 20070301
  30. SEROQUEL [Suspect]
     Route: 048
     Dates: start: 20060101, end: 20070301
  31. ABILIFY [Concomitant]
     Route: 048
     Dates: start: 20050115
  32. ABILIFY [Concomitant]
     Route: 048
     Dates: start: 20050101, end: 20060101
  33. CLOZARIL [Concomitant]
     Dates: start: 20000101
  34. RISPERDAL [Concomitant]
     Dates: start: 19970101, end: 19980101
  35. ZYPREXA [Concomitant]
     Dosage: 10-200 MG
     Dates: start: 19970101, end: 20030101
  36. ZYPREXA [Concomitant]
     Route: 048
     Dates: start: 19990619, end: 20030101
  37. ZYPREXA [Concomitant]
     Dates: start: 20030530
  38. TRAZODONE HCL [Concomitant]
     Route: 048
     Dates: start: 19990601
  39. TRAZODONE HCL [Concomitant]
     Dosage: 1 TAB QAM, 3 TAB HS
     Dates: start: 20000601
  40. TRAZODONE HCL [Concomitant]
     Dates: start: 19980101, end: 20070101
  41. REMERON [Concomitant]
     Dates: start: 19990702
  42. REMERON [Concomitant]
     Dates: start: 20010426, end: 20050101
  43. ALTACE [Concomitant]
     Route: 048
     Dates: start: 20000501
  44. ALTACE [Concomitant]
     Route: 048
     Dates: start: 20050216
  45. DEPAKOTE [Concomitant]
     Dates: start: 19980101, end: 20070101
  46. DEPAKOTE [Concomitant]
     Route: 048
     Dates: start: 19990701, end: 20030101
  47. DEPAKOTE [Concomitant]
     Route: 048
     Dates: start: 20031216
  48. CLONAZEPAM [Concomitant]
     Dates: start: 19980101, end: 20070101
  49. CLONAZEPAM [Concomitant]
     Dosage: 1 TAB BID, 2 TAB HS
     Route: 048
     Dates: start: 19991222
  50. CLONAZEPAM [Concomitant]
     Route: 048
     Dates: start: 20000124, end: 20000101
  51. CLONAZEPAM [Concomitant]
     Route: 048
     Dates: start: 20001110, end: 20000101
  52. PRILOSEC [Concomitant]
     Route: 048
     Dates: start: 20000808
  53. LORAZEPAM [Concomitant]
     Route: 048
     Dates: start: 20000619
  54. TRICAN [Concomitant]
     Route: 048
     Dates: start: 20000202
  55. ISOSORBIDE DINITRATE [Concomitant]
     Route: 048
     Dates: start: 20000419
  56. SYNTHROID [Concomitant]
     Dosage: 0.025 MG TO 0.088 MG
     Route: 048
     Dates: start: 20000313
  57. PROPRANOLOL [Concomitant]
     Indication: ANXIETY
     Route: 048
     Dates: start: 20000313
  58. MONOPRIL [Concomitant]
     Route: 048
     Dates: start: 20011025
  59. PROTONIX [Concomitant]
     Route: 048
     Dates: start: 20020315
  60. HYDROXYZINE PAMOATE [Concomitant]
     Indication: PANIC ATTACK
     Dosage: 50 MG Q8H PRN
     Route: 048
     Dates: start: 20020506
  61. NEXIUM [Concomitant]
     Route: 048
     Dates: start: 20050223
  62. LEVOTHYROXINE [Concomitant]
     Dosage: 0.150 MG TO 0.175 MG
     Route: 048
     Dates: start: 20041025
  63. AVANDIA [Concomitant]
     Route: 048
     Dates: start: 20041021
  64. GEODON [Concomitant]
     Dates: start: 20041022
  65. GLUCOPHAGE [Concomitant]
     Indication: DIABETES MELLITUS
     Route: 048
     Dates: start: 20000401
  66. GLUCOPHAGE [Concomitant]
     Route: 048
     Dates: start: 20000505, end: 20000101
  67. AMARYL [Concomitant]
     Indication: DIABETES MELLITUS
     Route: 048
     Dates: start: 20001121
  68. VALIUM [Concomitant]
     Dates: start: 20060522
  69. PROZAC [Concomitant]
     Route: 048
     Dates: start: 19960620
  70. LUNESTA [Concomitant]
     Dates: start: 20061018
  71. IBUPROFEN [Concomitant]
     Dates: start: 20050830
  72. OXYCONTIN [Concomitant]
     Dates: start: 20010703
  73. THORAZINE [Concomitant]
     Dates: start: 20060101, end: 20070101

REACTIONS (19)
  - ARTHRITIS [None]
  - ASTHENIA [None]
  - CARDIAC DISORDER [None]
  - CHEST PAIN [None]
  - DIPLOPIA [None]
  - DYSPHAGIA [None]
  - FALL [None]
  - FATTY LIVER ALCOHOLIC [None]
  - GLAUCOMA [None]
  - HEPATIC STEATOSIS [None]
  - INTERVERTEBRAL DISC DISORDER [None]
  - NEUROPATHY PERIPHERAL [None]
  - PANCREATITIS [None]
  - POLYNEUROPATHY [None]
  - RESTLESS LEGS SYNDROME [None]
  - SPINAL OSTEOARTHRITIS [None]
  - TRAUMATIC BRAIN INJURY [None]
  - TYPE 2 DIABETES MELLITUS [None]
  - VISION BLURRED [None]
